FAERS Safety Report 8255078-4 (Version None)
Quarter: 2012Q2

REPORT INFORMATION
  Report Type: 
  Country: None (occurrence: None)
  Receive Date: 20120403
  Receipt Date: 20120320
  Transmission Date: 20120825
  Serious: No
  Sender: FDA-Public Use
  Company Number: US-JNJFOC-20120311576

PATIENT
  Sex: Female

DRUGS (5)
  1. DEPAKOTE [Concomitant]
     Route: 048
  2. TRAZODONE HCL [Concomitant]
     Route: 048
  3. SERTRALINE HYDROCHLORIDE [Concomitant]
     Route: 048
  4. ZYPREXA [Concomitant]
     Route: 048
  5. INVEGA SUSTENNA [Suspect]
     Indication: PRODUCT USED FOR UNKNOWN INDICATION
     Route: 030

REACTIONS (3)
  - DEVICE MALFUNCTION [None]
  - DRUG DOSE OMISSION [None]
  - DEVICE LEAKAGE [None]
